FAERS Safety Report 16538891 (Version 1)
Quarter: 2019Q3

REPORT INFORMATION
  Report Type: Spontaneous
  Country: US (occurrence: US)
  Receive Date: 20190708
  Receipt Date: 20190708
  Transmission Date: 20191004
  Serious: Yes (Other)
  Sender: FDA-Public Use
  Company Number: US-COLGATE PALMOLIVE COMPANY-20190601701

PATIENT
  Sex: Male

DRUGS (2)
  1. COLGATE TOTAL SF ADVANCED FRESH PLUS WHITENING GEL [Suspect]
     Active Substance: STANNOUS FLUORIDE
     Dosage: UNKNOWN DOSE
     Dates: start: 20190609, end: 201906
  2. COLGATE TOTAL SF ADVANCED FRESH PLUS WHITENING GEL [Suspect]
     Active Substance: STANNOUS FLUORIDE
     Indication: DENTAL DISORDER PROPHYLAXIS
     Dosage: UNKNOWN DOSE
     Dates: start: 201905, end: 2019

REACTIONS (14)
  - Speech disorder [Unknown]
  - Oral disorder [Recovering/Resolving]
  - Insomnia [Unknown]
  - Mouth ulceration [Unknown]
  - Tongue ulceration [Unknown]
  - Impaired quality of life [Recovering/Resolving]
  - Stomatitis [Unknown]
  - Scar [Unknown]
  - Oral discomfort [Recovering/Resolving]
  - Hypoaesthesia oral [Unknown]
  - Lip pain [Unknown]
  - Pain [Unknown]
  - Oral hyperaesthesia [Not Recovered/Not Resolved]
  - Ageusia [Unknown]

NARRATIVE: CASE EVENT DATE: 201905
